FAERS Safety Report 5186426-X (Version None)
Quarter: 2006Q4

REPORT INFORMATION
  Report Type: 
  Country: None (occurrence: None)
  Receive Date: 20061220
  Receipt Date: 20061107
  Transmission Date: 20070319
  Serious: No
  Sender: FDA-Public Use
  Company Number: JP-ELI_LILLY_AND_COMPANY-JP200611001465

PATIENT
  Age: 33 Year
  Sex: Female
  Weight: 51.4 kg

DRUGS (9)
  1. OLANZAPINE [Suspect]
     Indication: SCHIZOPHRENIA, PARANOID TYPE
     Dosage: 10 MG, DAILY (1/D)
     Route: 048
     Dates: start: 20060509, end: 20060516
  2. OLANZAPINE [Suspect]
     Dosage: 20 MG, DAILY (1/D)
     Route: 048
     Dates: start: 20060517, end: 20060605
  3. OLANZAPINE [Suspect]
     Dosage: 10 MG, DAILY (1/D)
     Route: 048
     Dates: start: 20060606, end: 20060608
  4. ROHYPNOL                                /NET/ [Concomitant]
     Dosage: 4 MG, DAILY (1/D)
     Route: 048
     Dates: start: 20060506
  5. LEVOTOMIN [Concomitant]
     Indication: SCHIZOPHRENIA, PARANOID TYPE
     Dosage: 25 MG, DAILY (1/D)
     Route: 048
     Dates: start: 20060510, end: 20060510
  6. LEVOTOMIN [Concomitant]
     Dosage: 50 MG, DAILY (1/D)
     Route: 048
     Dates: start: 20060511, end: 20060519
  7. LEVOTOMIN [Concomitant]
     Dosage: 25 MG, DAILY (1/D)
     Route: 048
     Dates: start: 20060520, end: 20060523
  8. RISPERDAL                               /SWE/ [Concomitant]
     Indication: SCHIZOPHRENIA, PARANOID TYPE
     Dosage: 4 MG, DAILY (1/D)
     Route: 048
     Dates: start: 20060530, end: 20060607
  9. RISPERDAL                               /SWE/ [Concomitant]
     Dosage: 6 MG, DAILY (1/D)
     Route: 048
     Dates: start: 20060608, end: 20060713

REACTIONS (2)
  - DISINHIBITION [None]
  - NO ADVERSE DRUG EFFECT [None]
